FAERS Safety Report 4584665-X (Version None)
Quarter: 2005Q1

REPORT INFORMATION
  Report Type: 
  Country: None (occurrence: None)
  Receive Date: 20050125
  Receipt Date: 20041014
  Transmission Date: 20050727
  Serious: No
  Sender: FDA-Public Use
  Company Number: USA040978526

PATIENT
  Age: 92 Year
  Sex: Female
  Weight: 45 kg

DRUGS (1)
  1. FORTEO [Suspect]
     Indication: BONE DISORDER
     Dosage: 20 UG/1 DAY
     Dates: start: 20040728, end: 20040801

REACTIONS (5)
  - FALL [None]
  - FEELING COLD [None]
  - INITIAL INSOMNIA [None]
  - NAUSEA [None]
  - SKIN LACERATION [None]
